FAERS Safety Report 11964367 (Version 1)
Quarter: 2016Q1

REPORT INFORMATION
  Report Type: Spontaneous
  Country: US (occurrence: None)
  Receive Date: 20160121
  Receipt Date: 20160121
  Transmission Date: 20160526
  Serious: Yes (Hospitalization)
  Sender: FDA-Public Use
  Company Number: None

PATIENT
  Age: 75 Year
  Sex: Female
  Weight: 54.43 kg

DRUGS (5)
  1. ELIQUIS [Concomitant]
     Active Substance: APIXABAN
  2. XARELTO [Suspect]
     Active Substance: RIVAROXABAN
     Indication: ANTICOAGULANT THERAPY
     Dosage: 1
     Route: 048
     Dates: start: 20150710, end: 20150816
  3. METOPROLOL. [Concomitant]
     Active Substance: METOPROLOL
  4. XARELTO [Suspect]
     Active Substance: RIVAROXABAN
     Indication: ATRIAL FIBRILLATION
     Dosage: 1
     Route: 048
     Dates: start: 20150710, end: 20150816
  5. COPAXONE [Concomitant]
     Active Substance: GLATIRAMER ACETATE

REACTIONS (6)
  - Pain in extremity [None]
  - Haematoma [None]
  - Compartment syndrome [None]
  - Fall [None]
  - Hypoaesthesia [None]
  - Peripheral swelling [None]

NARRATIVE: CASE EVENT DATE: 20150816
